FAERS Safety Report 5272449-9 (Version None)
Quarter: 2007Q1

REPORT INFORMATION
  Report Type: 
  Country: None (occurrence: None)
  Receive Date: 20070320
  Receipt Date: 20070320
  Transmission Date: 20070707
  Serious: No
  Sender: FDA-Public Use
  Company Number: None

PATIENT
  Age: 81 Year
  Sex: Male
  Weight: 79.3795 kg

DRUGS (1)
  1. PREDNISONE [Suspect]
     Indication: PRODUCTIVE COUGH
     Dosage: 3 TAB THEN 2 TAB THEN 1 TAB THREE DAYS EACH
     Dates: start: 20070306, end: 20070315

REACTIONS (5)
  - BALANCE DISORDER [None]
  - CONDITION AGGRAVATED [None]
  - GAIT DISTURBANCE [None]
  - HEARING IMPAIRED [None]
  - NEUROPATHY PERIPHERAL [None]
